FAERS Safety Report 9093629 (Version 1)
Quarter: 2013Q1

REPORT INFORMATION
  Report Type: Spontaneous
  Country: US (occurrence: US)
  Receive Date: 20130201
  Receipt Date: 20130201
  Transmission Date: 20140127
  Serious: Yes (Other)
  Sender: FDA-Public Use
  Company Number: US-AMGEN-USASP2013005358

PATIENT
  Sex: Female

DRUGS (15)
  1. PROLIA [Suspect]
     Indication: OSTEOPOROSIS POSTMENOPAUSAL
     Dosage: UNK
     Dates: start: 20120323
  2. LIPITOR [Concomitant]
     Dosage: 10 MG, QD
  3. AMITRIPTYLINE [Concomitant]
     Dosage: 25 MG, QD
  4. ASPIRIN [Concomitant]
     Dosage: 81 MG, QD
  5. COUMADINE [Concomitant]
  6. SYNTHROID [Concomitant]
     Dosage: 75 MUG, QD
  7. XANAX [Concomitant]
  8. SYMBICORT [Concomitant]
  9. NEXIUM                             /01479302/ [Concomitant]
     Dosage: 40 MG, QD
  10. METOPROLOL [Concomitant]
  11. AMLODIPINE [Concomitant]
  12. BENAZEPRIL [Concomitant]
  13. PERCOCET                           /00446701/ [Concomitant]
  14. AMOXICILLIN [Concomitant]
     Dosage: FIRST WEEK OF EVERY OTHER MONTH
  15. DOXYCYCLINE [Concomitant]
     Dosage: FIRST WEEK OF EVERY OTHER MONTH

REACTIONS (7)
  - Epistaxis [Unknown]
  - Blood pressure abnormal [Recovered/Resolved]
  - Paraesthesia [Unknown]
  - Hypoaesthesia [Unknown]
  - Vitamin D decreased [Recovered/Resolved]
  - Local swelling [Unknown]
  - Blood calcium decreased [Recovered/Resolved]
